FAERS Safety Report 5309830-5 (Version None)
Quarter: 2007Q2

REPORT INFORMATION
  Report Type: 
  Country: None (occurrence: None)
  Receive Date: 20070427
  Receipt Date: 20070419
  Transmission Date: 20071010
  Serious: Yes (Hospitalization, Other)
  Sender: FDA-Public Use
  Company Number: US-AMGEN-US202378

PATIENT
  Sex: Male
  Weight: 81.7 kg

DRUGS (33)
  1. ARANESP [Suspect]
     Indication: RENAL FAILURE CHRONIC
     Route: 058
     Dates: start: 20031013, end: 20070131
  2. ACETAMINOPHEN [Concomitant]
     Route: 048
  3. ACTONEL [Concomitant]
     Route: 048
  4. ALBUTEROL [Concomitant]
  5. ALDACTONE [Concomitant]
     Route: 048
  6. ALLOPURINOL [Concomitant]
     Route: 048
     Dates: start: 20061204
  7. ASPIRIN [Concomitant]
     Route: 048
  8. BECONASE AQUA [Concomitant]
  9. BUMEX [Concomitant]
     Route: 048
  10. CALCITRIOL [Concomitant]
     Route: 048
  11. CYCLOSPORINE [Concomitant]
     Route: 048
     Dates: start: 20061204
  12. DIGOXIN [Concomitant]
     Route: 048
  13. FLOMAX [Concomitant]
     Route: 048
  14. NEURONTIN [Concomitant]
     Route: 048
  15. PREDNISONE TAB [Concomitant]
     Route: 048
  16. PROTONIX [Concomitant]
     Route: 048
  17. REGLAN [Concomitant]
     Route: 048
  18. SYNTHROID [Concomitant]
     Route: 048
  19. TOPROL-XL [Concomitant]
     Route: 048
  20. VICODIN [Concomitant]
     Route: 048
  21. VITAMIN D [Concomitant]
     Route: 048
  22. ZOCOR [Concomitant]
     Route: 048
  23. ZOLOFT [Concomitant]
     Route: 048
  24. DIATX [Concomitant]
     Route: 048
  25. FISH OIL [Concomitant]
     Route: 048
  26. DULCOLAX [Concomitant]
     Route: 054
  27. MILK OF MAGNESIA [Concomitant]
     Route: 048
  28. LAXATIVES [Concomitant]
     Route: 048
  29. FLUCONAZOLE [Concomitant]
  30. GABAPENTIN [Concomitant]
     Route: 048
  31. EPA-DHA [Concomitant]
     Route: 048
  32. IRON [Concomitant]
  33. RANITIDINE [Concomitant]
     Route: 048

REACTIONS (17)
  - ALANINE AMINOTRANSFERASE INCREASED [None]
  - ANAEMIA [None]
  - ASPARTATE AMINOTRANSFERASE INCREASED [None]
  - ASTHENIA [None]
  - BONE MARROW FAILURE [None]
  - BURNS SECOND DEGREE [None]
  - CANDIDURIA [None]
  - FALL [None]
  - HERPES ZOSTER [None]
  - HYPOTENSION [None]
  - NAUSEA [None]
  - OSTEOMYELITIS [None]
  - PNEUMONIA [None]
  - RENAL FAILURE ACUTE [None]
  - SKIN NECROSIS [None]
  - SUBARACHNOID HAEMORRHAGE [None]
  - VOMITING [None]
